FAERS Safety Report 24652190 (Version 4)
Quarter: 2025Q2

REPORT INFORMATION
  Report Type: Spontaneous
  Country: JP (occurrence: JP)
  Receive Date: 20241122
  Receipt Date: 20250407
  Transmission Date: 20250716
  Serious: No
  Sender: PFIZER
  Company Number: JP-PFIZER INC-PV202400148555

PATIENT

DRUGS (1)
  1. NGENLA [Suspect]
     Active Substance: SOMATROGON-GHLA

REACTIONS (4)
  - Injection site pain [Unknown]
  - Crying [Unknown]
  - Injection site erythema [Unknown]
  - Device difficult to use [Unknown]
